FAERS Safety Report 11204533 (Version 3)
Quarter: 2015Q3

REPORT INFORMATION
  Report Type: Report from Study
  Country: BR (occurrence: BR)
  Receive Date: 20150622
  Receipt Date: 20150728
  Transmission Date: 20151125
  Serious: Yes (Other)
  Sender: FDA-Public Use
  Company Number: BR-ROCHE-1596381

PATIENT
  Sex: Female
  Weight: 46 kg

DRUGS (3)
  1. ACTEMRA [Suspect]
     Active Substance: TOCILIZUMAB
     Route: 042
     Dates: end: 20150601
  2. ARAVA [Concomitant]
     Active Substance: LEFLUNOMIDE
     Indication: PAIN
  3. ACTEMRA [Suspect]
     Active Substance: TOCILIZUMAB
     Indication: RHEUMATOID ARTHRITIS
     Route: 042
     Dates: start: 20141110, end: 20150116

REACTIONS (3)
  - Pneumonia [Not Recovered/Not Resolved]
  - Cholelithiasis [Unknown]
  - Immunodeficiency [Unknown]
